FAERS Safety Report 18927566 (Version 2)
Quarter: 2021Q1

REPORT INFORMATION
  Report Type: Report from Study
  Country: US (occurrence: US)
  Receive Date: 20210223
  Receipt Date: 20210304
  Transmission Date: 20210420
  Serious: No
  Sender: FDA-Public Use
  Company Number: US-TAKEDA-US202001909

PATIENT
  Age: 64 Year
  Sex: Female
  Weight: 59.86 kg

DRUGS (19)
  1. ASPIRIN [ACETYLSALICYLIC ACID] [Concomitant]
     Active Substance: ASPIRIN
     Route: 065
  2. ACETAMINOPHEN. [Concomitant]
     Active Substance: ACETAMINOPHEN
     Route: 065
  3. LMX4 [Concomitant]
     Active Substance: LIDOCAINE
  4. HUMAN NORMAL IMMUNOGLOBULIN; LIQUID [Suspect]
     Active Substance: HUMAN IMMUNOGLOBULIN G
     Indication: IMMUNODEFICIENCY COMMON VARIABLE
     Dosage: UNK UNK, 1/WEEK
     Route: 042
  5. HUMAN NORMAL IMMUNOGLOBULIN; LIQUID [Suspect]
     Active Substance: HUMAN IMMUNOGLOBULIN G
     Dosage: 12 GRAM, 1/WEEK
     Route: 058
     Dates: start: 20200206
  6. DIPHENHYDRAMINE. [Concomitant]
     Active Substance: DIPHENHYDRAMINE
     Route: 065
  7. EPINEPHRINE. [Concomitant]
     Active Substance: EPINEPHRINE
     Route: 065
  8. CALCIUM + VIT D [Concomitant]
     Active Substance: CALCIUM\VITAMIN D
     Route: 065
  9. ESTRACE [Concomitant]
     Active Substance: ESTRADIOL
     Route: 065
  10. VITAMIN B NOS [Concomitant]
     Active Substance: VITAMIN B
     Route: 065
  11. VITAMIN C [Concomitant]
     Active Substance: ASCORBIC ACID
     Route: 065
  12. MAGNESIUM [Concomitant]
     Active Substance: MAGNESIUM
     Route: 065
  13. DHEA [Concomitant]
     Active Substance: PRASTERONE
     Route: 065
  14. ESTRADIOL. [Concomitant]
     Active Substance: ESTRADIOL
     Route: 065
  15. PROGESTERONE. [Concomitant]
     Active Substance: PROGESTERONE
     Route: 065
  16. VITAMIN D2 [Concomitant]
     Active Substance: ERGOCALCIFEROL
     Route: 065
  17. EMERGEN C [Concomitant]
     Active Substance: MINERALS\VITAMINS
     Route: 065
  18. LIDOCAINE;PRILOCAINE [Concomitant]
     Route: 065
  19. PROMETHAZINE [Concomitant]
     Active Substance: PROMETHAZINE HYDROCHLORIDE
     Route: 065

REACTIONS (4)
  - COVID-19 [Unknown]
  - Incorrect product administration duration [Not Recovered/Not Resolved]
  - Product availability issue [Unknown]
  - Infusion site pain [Unknown]

NARRATIVE: CASE EVENT DATE: 202101
